FAERS Safety Report 8059379-4 (Version None)
Quarter: 2012Q1

REPORT INFORMATION
  Report Type: 
  Country: None (occurrence: None)
  Receive Date: 20120120
  Receipt Date: 20120116
  Transmission Date: 20120608
  Serious: Yes (Other)
  Sender: FDA-Public Use
  Company Number: FR-PFIZER INC-2012011682

PATIENT
  Age: 5 Year
  Sex: Male

DRUGS (1)
  1. PEDIATRIC ADVIL [Suspect]
     Dosage: UNKNOWN

REACTIONS (1)
  - ERYTHEMA [None]
